FAERS Safety Report 7846672-0 (Version None)
Quarter: 2011Q4

REPORT INFORMATION
  Report Type: 
  Country: None (occurrence: None)
  Receive Date: 20111025
  Receipt Date: 20111018
  Transmission Date: 20120403
  Serious: Yes (Other)
  Sender: FDA-Public Use
  Company Number: PHEH2008US04229

PATIENT
  Sex: Male
  Weight: 102.4 kg

DRUGS (12)
  1. CALCIUM WITH VITAMIN D [Concomitant]
  2. CELEBREX [Concomitant]
  3. OXYCODONE HCL [Concomitant]
     Dosage: 10 MG, BID
     Route: 048
  4. BENEMID [Concomitant]
  5. AUGMENTIN [Concomitant]
  6. CHLORHEXIDINE GLUCONATE [Concomitant]
  7. BIAXIN [Concomitant]
     Dosage: 500 MG, UNK
  8. CHEMOTHERAPEUTICS [Concomitant]
  9. AREDIA [Suspect]
     Indication: MULTIPLE MYELOMA
     Dates: start: 19970701
  10. ZOMETA [Suspect]
     Indication: BONE DISORDER
     Route: 042
  11. MAGNESIUM HYDROXIDE [Concomitant]
  12. SPIRONOLACTONE [Concomitant]

REACTIONS (50)
  - OSTEONECROSIS OF JAW [None]
  - FEMUR FRACTURE [None]
  - OSTEOARTHRITIS [None]
  - COMPRESSION FRACTURE [None]
  - INTERVERTEBRAL DISC PROTRUSION [None]
  - GOUT [None]
  - PROSTATE INFECTION [None]
  - METASTASES TO BONE [None]
  - DIAPHRAGMATIC PARALYSIS [None]
  - VERTEBRAL FORAMINAL STENOSIS [None]
  - LUMBAR SPINAL STENOSIS [None]
  - IMPAIRED HEALING [None]
  - PYELOCALIECTASIS [None]
  - SCOLIOSIS [None]
  - ANAEMIA [None]
  - NEOPLASM PROGRESSION [None]
  - PLEURAL EFFUSION [None]
  - HERPES ZOSTER [None]
  - BASAL CELL CARCINOMA [None]
  - HAEMORRHOIDS [None]
  - LEUKOPENIA [None]
  - PROTEIN URINE PRESENT [None]
  - BACK PAIN [None]
  - TOOTHACHE [None]
  - GINGIVAL BLEEDING [None]
  - PATHOLOGICAL FRACTURE [None]
  - INFECTION [None]
  - OSTEOPOROSIS [None]
  - LUMBAR VERTEBRAL FRACTURE [None]
  - OEDEMA PERIPHERAL [None]
  - AMNESIA [None]
  - BONE PAIN [None]
  - NEUROPATHY PERIPHERAL [None]
  - CONSTIPATION [None]
  - DIABETES MELLITUS [None]
  - ATELECTASIS [None]
  - ACTINIC KERATOSIS [None]
  - PAIN [None]
  - SCAR [None]
  - DYSPNOEA [None]
  - PAIN IN JAW [None]
  - ARTHROPATHY [None]
  - GAIT DISTURBANCE [None]
  - ABSCESS [None]
  - DERMATITIS [None]
  - BONE LESION [None]
  - CALCULUS BLADDER [None]
  - OSTEOMYELITIS [None]
  - CARDIOMEGALY [None]
  - NEOPLASM MALIGNANT [None]
